FAERS Safety Report 23679657 (Version 1)
Quarter: 2024Q1

REPORT INFORMATION
  Report Type: Spontaneous
  Country: US (occurrence: US)
  Receive Date: 20240327
  Receipt Date: 20240327
  Transmission Date: 20240410
  Serious: No
  Sender: FDA-Public Use
  Company Number: US-KARYOPHARM-2024KPT000766

PATIENT

DRUGS (6)
  1. XPOVIO [Suspect]
     Active Substance: SELINEXOR
     Indication: Renal cancer
     Dosage: 20 MG, 2X/WEEK ON DAYS 1 AND 3
     Route: 048
  2. FENTANYL [Concomitant]
     Active Substance: FENTANYL\FENTANYL CITRATE
  3. SCOPOLAMINE HYDROCHLORIDE [Concomitant]
     Active Substance: SCOPOLAMINE HYDROCHLORIDE
  4. ZOLOFT [Concomitant]
     Active Substance: SERTRALINE HYDROCHLORIDE
  5. BACTRIM [Concomitant]
     Active Substance: SULFAMETHOXAZOLE\TRIMETHOPRIM
  6. NARCAN [Concomitant]
     Active Substance: NALOXONE HYDROCHLORIDE

REACTIONS (2)
  - No adverse event [Unknown]
  - Off label use [Unknown]
